FAERS Safety Report 14039575 (Version 1)
Quarter: 2017Q4

REPORT INFORMATION
  Report Type: Spontaneous
  Country: DK (occurrence: DK)
  Receive Date: 20171004
  Receipt Date: 20171004
  Transmission Date: 20180321
  Serious: Yes (Hospitalization)
  Sender: FDA-Public Use
  Company Number: DK-PURDUE-GBR-2017-0049450

PATIENT

DRUGS (18)
  1. ENALAPRIL [Concomitant]
     Active Substance: ENALAPRIL
  2. HYDROXYUREA. [Concomitant]
     Active Substance: HYDROXYUREA
     Dosage: UNK
     Dates: start: 20170912
  3. METOPROLOL SUCCINATE W/HYDROCHLOROTHIAZIDE [Concomitant]
     Dosage: UNK
     Dates: start: 20140620
  4. PROLIA [Concomitant]
     Active Substance: DENOSUMAB
     Dosage: UNK
     Dates: start: 20170502
  5. CONTALGIN UNO DEPOTKAPSLER [Suspect]
     Active Substance: MORPHINE SULFATE
     Indication: PAIN
     Dosage: 10 MG, BID
     Route: 048
     Dates: start: 20170908, end: 20170912
  6. ALLOPURINOL. [Concomitant]
     Active Substance: ALLOPURINOL
     Dosage: UNK
     Dates: start: 20170912
  7. FURIX [Concomitant]
     Active Substance: FUROSEMIDE
     Dosage: UNK
     Dates: start: 20130430
  8. SALBUTAMOL [Concomitant]
     Active Substance: ALBUTEROL
     Dosage: UNK
     Dates: start: 20170127
  9. MAGNESIUM HYDROXIDE. [Concomitant]
     Active Substance: MAGNESIUM HYDROXIDE
     Dosage: UNK
     Dates: start: 20170403
  10. MYCOSTATIN [Concomitant]
     Active Substance: NYSTATIN
     Dosage: UNK
     Dates: start: 20170904
  11. PANODIL [Concomitant]
     Active Substance: ACETAMINOPHEN
     Dosage: UNK
     Dates: start: 20161210
  12. KALEORID [Concomitant]
     Active Substance: POTASSIUM CHLORIDE
     Dosage: UNK
     Dates: start: 20130430
  13. MORFIN                             /00036301/ [Concomitant]
     Active Substance: MORPHINE SULFATE
     Dosage: UNK
     Dates: start: 20170908
  14. UNIKALK BASIC [Concomitant]
     Dosage: UNK
     Dates: start: 20170913
  15. METOCLOPRAMIDE. [Suspect]
     Active Substance: METOCLOPRAMIDE
     Indication: NAUSEA
     Dosage: 10 MG, PRN [MAXIMUM 3 TIMES DAILY]
     Route: 048
     Dates: start: 201708, end: 20170912
  16. COVERSYL NOVUM [Concomitant]
     Active Substance: PERINDOPRIL
     Dosage: UNK
     Dates: start: 20160502
  17. ATORVASTATIN [Concomitant]
     Active Substance: ATORVASTATIN
     Dosage: UNK
     Dates: start: 20151112
  18. PANTOLOC                           /01263204/ [Concomitant]
     Active Substance: PANTOPRAZOLE SODIUM
     Dosage: UNK
     Dates: start: 20131219

REACTIONS (7)
  - Confusional state [Unknown]
  - Renal impairment [Unknown]
  - Asthenia [Unknown]
  - Glomerular filtration rate decreased [Unknown]
  - Cough [Unknown]
  - Condition aggravated [Unknown]
  - Nausea [Unknown]

NARRATIVE: CASE EVENT DATE: 201709
